FAERS Safety Report 9744438 (Version 1)
Quarter: 2013Q4

REPORT INFORMATION
  Report Type: Spontaneous
  Country: CA (occurrence: CA)
  Receive Date: 20131210
  Receipt Date: 20131210
  Transmission Date: 20140711
  Serious: Yes (Hospitalization)
  Sender: FDA-Public Use
  Company Number: CA-B.I. PHARMACEUTICALS,INC./RIDGEFIELD-2013-BI-41109CN

PATIENT
  Sex: 0

DRUGS (2)
  1. PRADAXA [Suspect]
  2. FRAGMIN [Concomitant]

REACTIONS (2)
  - Ileostomy [Recovered/Resolved]
  - Haemorrhage [Recovered/Resolved]
